FAERS Safety Report 13765502 (Version 7)
Quarter: 2020Q1

REPORT INFORMATION
  Report Type: Spontaneous
  Country: US (occurrence: US)
  Receive Date: 20170718
  Receipt Date: 20200305
  Transmission Date: 20200409
  Serious: Yes (Other)
  Sender: FDA-Public Use
  Company Number: US-PFIZER INC-2017310535

PATIENT
  Age: 76 Year
  Sex: Female

DRUGS (2)
  1. EFFEXOR XR [Suspect]
     Active Substance: VENLAFAXINE HYDROCHLORIDE
     Indication: ANXIETY
     Dosage: 225 MG, 1X/DAY (3 TABS)
     Route: 048
  2. EFFEXOR XR [Suspect]
     Active Substance: VENLAFAXINE HYDROCHLORIDE
     Indication: POST-TRAUMATIC STRESS DISORDER

REACTIONS (8)
  - Migraine [Unknown]
  - Nausea [Unknown]
  - Depressed mood [Unknown]
  - Gait inability [Unknown]
  - Withdrawal syndrome [Unknown]
  - Malaise [Unknown]
  - Fall [Unknown]
  - Dizziness [Unknown]
